FAERS Safety Report 19980666 (Version 1)
Quarter: 2021Q4

REPORT INFORMATION
  Report Type: Spontaneous
  Country: CA (occurrence: CA)
  Receive Date: 20211021
  Receipt Date: 20211021
  Transmission Date: 20220303
  Serious: Yes (Other)
  Sender: FDA-Public Use
  Company Number: CA-TEVA-2021-CA-1967090

PATIENT
  Age: 54 Year
  Sex: Male

DRUGS (4)
  1. EMTRICITABINE\TENOFOVIR DISOPROXIL FUMARATE [Suspect]
     Active Substance: EMTRICITABINE\TENOFOVIR DISOPROXIL FUMARATE
     Indication: HIV infection
     Route: 065
  2. DORAVIRINE [Concomitant]
     Active Substance: DORAVIRINE
     Indication: HIV infection
  3. DOLUTEGRAVIR [Concomitant]
     Active Substance: DOLUTEGRAVIR
     Indication: HIV infection
  4. DARUNAVIR\RITONAVIR [Concomitant]
     Active Substance: DARUNAVIR\RITONAVIR
     Indication: HIV infection

REACTIONS (3)
  - CSF HIV escape syndrome [Unknown]
  - Encephalitis [Unknown]
  - Drug ineffective [Unknown]
